FAERS Safety Report 7015715-9 (Version None)
Quarter: 2010Q3

REPORT INFORMATION
  Report Type: 
  Country: None (occurrence: None)
  Receive Date: 20100927
  Receipt Date: 20100428
  Transmission Date: 20110219
  Serious: No
  Sender: FDA-Public Use
  Company Number: US-ASTRAZENECA-2009SE14423

PATIENT
  Age: 63 Year
  Sex: Female
  Weight: 63.5 kg

DRUGS (5)
  1. ARIMIDEX [Suspect]
     Indication: BREAST CANCER
     Route: 048
     Dates: start: 20090801, end: 20100424
  2. NEXIUM [Concomitant]
  3. PERCOCET [Concomitant]
     Indication: PAIN
  4. NAPROXEN SODIUM [Concomitant]
     Indication: PAIN
  5. REMERON [Concomitant]

REACTIONS (11)
  - ANXIETY [None]
  - ARTHRALGIA [None]
  - BONE PAIN [None]
  - DEPRESSION [None]
  - DRUG DOSE OMISSION [None]
  - FATIGUE [None]
  - HYPERGLYCAEMIA [None]
  - INFLUENZA LIKE ILLNESS [None]
  - MYALGIA [None]
  - OSTEOPENIA [None]
  - PAIN IN EXTREMITY [None]
